FAERS Safety Report 12321644 (Version 1)
Quarter: 2016Q2

REPORT INFORMATION
  Report Type: Spontaneous
  Country: US (occurrence: US)
  Receive Date: 20160502
  Receipt Date: 20160502
  Transmission Date: 20160815
  Serious: No
  Sender: FDA-Public Use
  Company Number: US-ASTRAZENECA-2016SE33385

PATIENT
  Age: 21740 Day
  Sex: Female
  Weight: 103 kg

DRUGS (8)
  1. METFORMIN [Concomitant]
     Active Substance: METFORMIN HYDROCHLORIDE
     Indication: DIABETES MELLITUS
     Route: 048
  2. BYDUREON [Suspect]
     Active Substance: EXENATIDE
     Indication: DIABETES MELLITUS
     Route: 058
     Dates: start: 20160320
  3. LISINOPRIL. [Suspect]
     Active Substance: LISINOPRIL
     Indication: HYPERTENSION
     Route: 048
  4. BABY ASPIRIN [Concomitant]
     Active Substance: ASPIRIN
     Route: 048
  5. LANTUS [Concomitant]
     Active Substance: INSULIN GLARGINE
     Indication: DIABETES MELLITUS
  6. SINGULAIR [Concomitant]
     Active Substance: MONTELUKAST SODIUM
     Indication: DYSPNOEA
     Route: 048
  7. GLIPIZIDE. [Concomitant]
     Active Substance: GLIPIZIDE
     Indication: BLOOD CHOLESTEROL ABNORMAL
     Route: 048
  8. SIMVASTATIN. [Concomitant]
     Active Substance: SIMVASTATIN
     Route: 048

REACTIONS (13)
  - Wheezing [Unknown]
  - Diarrhoea [Unknown]
  - Skin exfoliation [Unknown]
  - Oral pain [Unknown]
  - Cough [Unknown]
  - Pain [Unknown]
  - Decreased appetite [Unknown]
  - Lip blister [Unknown]
  - Feeling of body temperature change [Unknown]
  - Myalgia [Unknown]
  - Dehydration [Unknown]
  - Blister [Unknown]
  - Asthenia [Unknown]

NARRATIVE: CASE EVENT DATE: 20160320
